FAERS Safety Report 6477411-6 (Version None)
Quarter: 2009Q4

REPORT INFORMATION
  Report Type: 
  Country: None (occurrence: None)
  Receive Date: 20091207
  Receipt Date: 20091104
  Transmission Date: 20100525
  Serious: Yes (Hospitalization, Other)
  Sender: FDA-Public Use
  Company Number: -SANOFI-AVENTIS-200912647JP

PATIENT
  Sex: Female
  Weight: 36 kg

DRUGS (17)
  1. FEXOFENADINE HCL [Suspect]
     Route: 048
     Dates: start: 20090825, end: 20090904
  2. FEXOFENADINE HCL [Suspect]
     Indication: ECZEMA
     Route: 048
     Dates: start: 20090825, end: 20090904
  3. FEXOFENADINE HCL [Suspect]
     Route: 048
     Dates: start: 20090905, end: 20090914
  4. FEXOFENADINE HCL [Suspect]
     Route: 048
     Dates: start: 20090905, end: 20090914
  5. FEXOFENADINE HCL [Suspect]
     Route: 048
  6. FEXOFENADINE HCL [Suspect]
     Route: 048
  7. MYSLEE [Suspect]
     Indication: INSOMNIA
     Route: 048
     Dates: start: 20090824, end: 20090914
  8. ZYRTEC [Suspect]
     Route: 048
     Dates: start: 20090827, end: 20090904
  9. ATARAX [Suspect]
     Route: 048
     Dates: start: 20090823, end: 20090914
  10. FAMOTIDINE [Suspect]
     Indication: GASTRIC MUCOSAL LESION
     Route: 042
     Dates: start: 20090823, end: 20090902
  11. AMOBAN [Concomitant]
  12. EURODIN [Concomitant]
  13. BIBITTOACE [Suspect]
  14. RINDERON [Concomitant]
     Dates: end: 20090915
  15. KALLIDINOGENASE [Suspect]
     Dosage: 50 MG, 3 TABLETS
  16. DEPAS [Concomitant]
  17. PHENOBARBITAL TAB [Concomitant]
     Dosage: 30 MG, 4 TABLETS

REACTIONS (3)
  - DRUG RASH WITH EOSINOPHILIA AND SYSTEMIC SYMPTOMS [None]
  - LIVER DISORDER [None]
  - OFF LABEL USE [None]
